FAERS Safety Report 16998049 (Version 1)
Quarter: 2019Q4

REPORT INFORMATION
  Report Type: Spontaneous
  Country: GB (occurrence: GB)
  Receive Date: 20191106
  Receipt Date: 20191106
  Transmission Date: 20200122
  Serious: Yes (Hospitalization)
  Sender: FDA-Public Use
  Company Number: GB-TEVA-2019-GB-1131166

PATIENT
  Sex: Male

DRUGS (1)
  1. ATENOLOL. [Suspect]
     Active Substance: ATENOLOL
     Dosage: 100 MG
     Route: 048

REACTIONS (3)
  - Heart rate decreased [Unknown]
  - Wheezing [Unknown]
  - Product dispensing error [Unknown]
